FAERS Safety Report 16563653 (Version 3)
Quarter: 2019Q3

REPORT INFORMATION
  Report Type: Spontaneous
  Country: US (occurrence: US)
  Receive Date: 20190712
  Receipt Date: 20190801
  Transmission Date: 20191004
  Serious: Yes (Death, Other)
  Sender: FDA-Public Use
  Company Number: US-GLAXOSMITHKLINE-US2019123755

PATIENT
  Age: 88 Year
  Sex: Female

DRUGS (1)
  1. VALACICLOVIR HYDROCHLORIDE [Suspect]
     Active Substance: VALACYCLOVIR HYDROCHLORIDE
     Indication: HERPES ZOSTER
     Dosage: UNK
     Route: 048
     Dates: start: 20181115

REACTIONS (8)
  - Renal impairment [Not Recovered/Not Resolved]
  - Decubitus ulcer [Unknown]
  - Hallucination [Recovered/Resolved]
  - Speech disorder [Unknown]
  - Pruritus generalised [Recovered/Resolved]
  - Renal failure [Unknown]
  - Death [Fatal]
  - Odynophagia [Recovered/Resolved]

NARRATIVE: CASE EVENT DATE: 201811
